FAERS Safety Report 16144086 (Version 3)
Quarter: 2019Q2

REPORT INFORMATION
  Report Type: Spontaneous
  Country: SE (occurrence: SE)
  Receive Date: 20190401
  Receipt Date: 20190412
  Transmission Date: 20190711
  Serious: Yes (Hospitalization, Other)
  Sender: FDA-Public Use
  Company Number: SE-PFIZER INC-HQWYE100514DEC06

PATIENT
  Age: 58 Year
  Sex: Female

DRUGS (2)
  1. VOLTAREN [Suspect]
     Active Substance: DICLOFENAC SODIUM
     Dosage: 1 DF, UNK
     Route: 048
     Dates: start: 20060405, end: 20060406
  2. PANTOLOC [Suspect]
     Active Substance: PANTOPRAZOLE SODIUM
     Indication: ABDOMINAL HERNIA
     Dosage: 1 DF, UNK
     Route: 048
     Dates: start: 20060405, end: 20060406

REACTIONS (2)
  - Hepatitis [Recovered/Resolved]
  - Hepatic necrosis [Recovered/Resolved]

NARRATIVE: CASE EVENT DATE: 20060414
